FAERS Safety Report 9607401 (Version 2)
Quarter: 2013Q4

REPORT INFORMATION
  Report Type: Spontaneous
  Country: US (occurrence: US)
  Receive Date: 20131009
  Receipt Date: 20131010
  Transmission Date: 20140711
  Serious: Yes (Hospitalization)
  Sender: FDA-Public Use
  Company Number: US-BAYER-2013-119551

PATIENT
  Age: 46 Year
  Sex: Male

DRUGS (7)
  1. AVELOX [Suspect]
     Indication: SINUSITIS
     Dosage: 400 MG, QD
     Route: 048
     Dates: start: 20130923, end: 20130925
  2. DEPAKOTE [Concomitant]
  3. PAXIL [Concomitant]
  4. PLAVIX [Concomitant]
  5. ATENOLOL [Concomitant]
  6. PERCOCET [OXYCODONE HYDROCHLORIDE,PARACETAMOL] [Concomitant]
  7. FLEXERIL [Concomitant]

REACTIONS (8)
  - Genital pain [Not Recovered/Not Resolved]
  - Genital burning sensation [Not Recovered/Not Resolved]
  - Blister [Not Recovered/Not Resolved]
  - Skin exfoliation [Not Recovered/Not Resolved]
  - Penile exfoliation [Not Recovered/Not Resolved]
  - Vertigo [Not Recovered/Not Resolved]
  - Fatigue [Not Recovered/Not Resolved]
  - Pruritus genital [Not Recovered/Not Resolved]
